FAERS Safety Report 8896313 (Version 1)
Quarter: 2012Q4

REPORT INFORMATION
  Report Type: Spontaneous
  Country: US (occurrence: None)
  Receive Date: 20121106
  Receipt Date: 20121106
  Transmission Date: 20130627
  Serious: Yes (Death)
  Sender: FDA-Public Use
  Company Number: None

PATIENT
  Age: 60 Year
  Sex: Male
  Weight: 91 kg

DRUGS (4)
  1. CABAZITAXEL [Suspect]
     Indication: PROSTATE CANCER METASTATIC
     Route: 042
     Dates: end: 20121024
  2. OCTREOTIDE [Suspect]
     Route: 030
     Dates: start: 20121023, end: 20121031
  3. AMIODARONE [Concomitant]
  4. CRESTOR [Concomitant]

REACTIONS (3)
  - Dyspnoea [None]
  - Neutropenia [None]
  - Sepsis [None]
